FAERS Safety Report 18080573 (Version 1)
Quarter: 2020Q3

REPORT INFORMATION
  Report Type: Spontaneous
  Country: US (occurrence: US)
  Receive Date: 20200728
  Receipt Date: 20200728
  Transmission Date: 20201103
  Serious: Yes (Life-Threatening, Hospitalization, Disabling, Other)
  Sender: FDA-Public Use
  Company Number: US-NAPPMUNDI-USA-2020-0151067

PATIENT
  Age: 49 Year
  Sex: Female

DRUGS (17)
  1. OXYCODONE HYDROCHLORIDE (SIMILAR TO NDA 22?272) [Suspect]
     Active Substance: OXYCODONE HYDROCHLORIDE
     Indication: PAIN
     Dosage: 30 MG, PRN
     Route: 048
  2. DILAUDID [Suspect]
     Active Substance: HYDROMORPHONE HYDROCHLORIDE
     Indication: PAIN
     Dosage: UNK
     Route: 048
  3. TYLENOL WITH CODEINE [Suspect]
     Active Substance: ACETAMINOPHEN\CODEINE PHOSPHATE
     Indication: PAIN IN EXTREMITY
     Dosage: UNK
     Route: 048
  4. SUBOXONE [Suspect]
     Active Substance: BUPRENORPHINE HYDROCHLORIDE\NALOXONE HYDROCHLORIDE
     Indication: PAIN
     Dosage: UNK
     Route: 048
  5. XANAX [Suspect]
     Active Substance: ALPRAZOLAM
     Indication: PAIN
     Dosage: UNK
     Route: 065
  6. OXYCONTIN [Suspect]
     Active Substance: OXYCODONE HYDROCHLORIDE
     Indication: PAIN
     Dosage: 35 MG, TID
     Route: 048
  7. ULTRAM [Suspect]
     Active Substance: TRAMADOL HYDROCHLORIDE
     Indication: PAIN
     Dosage: UNK
     Route: 048
  8. FENTANYL. [Suspect]
     Active Substance: FENTANYL
     Indication: PAIN
     Dosage: UNK
     Route: 048
  9. PERCOCET                           /00446701/ [Suspect]
     Active Substance: ACETAMINOPHEN\OXYCODONE HYDROCHLORIDE\OXYCODONE TEREPHTHALATE
     Indication: PAIN
     Dosage: UNK
     Route: 048
  10. HYDROCODONE BITARTRATE (SIMILAR TO NDA 206627) [Suspect]
     Active Substance: HYDROCODONE BITARTRATE
     Indication: PAIN
     Dosage: UNK
     Route: 048
  11. BUPRENORPHINE (SIMILAR TO NDA 21?306) [Suspect]
     Active Substance: BUPRENORPHINE
     Indication: PAIN
     Dosage: UNK
     Route: 048
  12. METHADONE [Suspect]
     Active Substance: METHADONE HYDROCHLORIDE
     Indication: PAIN
     Dosage: UNK
     Route: 048
  13. MORPHINE SULFATE (SIMILAR TO NDA 19?516) [Suspect]
     Active Substance: MORPHINE SULFATE
     Indication: PAIN
     Dosage: 75MG?90MG, BID
     Route: 048
  14. OXYCONTIN [Suspect]
     Active Substance: OXYCODONE HYDROCHLORIDE
     Indication: RESTLESS LEGS SYNDROME
     Dosage: (80MG) 1 TABLET, PRN (4?6 TIMES PER DAY)
     Route: 048
  15. HYDROMORPHONE HCL (SIMILAR TO 19?892) [Suspect]
     Active Substance: HYDROMORPHONE HYDROCHLORIDE
     Indication: PAIN
     Dosage: UNK
     Route: 048
  16. LORTAB [Suspect]
     Active Substance: ACETAMINOPHEN\HYDROCODONE BITARTRATE
     Indication: PAIN IN EXTREMITY
     Dosage: UNK
     Route: 048
  17. VICODIN [Suspect]
     Active Substance: ACETAMINOPHEN\HYDROCODONE BITARTRATE
     Indication: PAIN
     Dosage: UNK
     Route: 048

REACTIONS (14)
  - Victim of sexual abuse [Unknown]
  - Drug withdrawal syndrome [Unknown]
  - Renal disorder [Unknown]
  - Product use issue [Unknown]
  - Product use in unapproved indication [Unknown]
  - Drug dependence [Unknown]
  - Road traffic accident [Unknown]
  - Off label use [Unknown]
  - Overdose [Unknown]
  - Suicide attempt [Unknown]
  - Drug abuse [Unknown]
  - Walking aid user [Unknown]
  - Exposure during pregnancy [Unknown]
  - Decreased appetite [Unknown]

NARRATIVE: CASE EVENT DATE: 201906
